FAERS Safety Report 6366712-8 (Version None)
Quarter: 2009Q3

REPORT INFORMATION
  Report Type: 
  Country: None (occurrence: None)
  Receive Date: 20090921
  Receipt Date: 20090911
  Transmission Date: 20100115
  Serious: Yes (Other)
  Sender: FDA-Public Use
  Company Number: US-ELI_LILLY_AND_COMPANY-US200909003405

PATIENT
  Sex: Male

DRUGS (4)
  1. ALIMTA [Suspect]
     Indication: MESOTHELIOMA MALIGNANT RECURRENT
     Dosage: 500 MG, UNK
     Route: 042
     Dates: start: 20060101
  2. CISPLATIN [Concomitant]
     Indication: PERITONEAL MESOTHELIOMA MALIGNANT
     Dates: start: 20060101
  3. VITAMINS NOS [Concomitant]
     Indication: VITAMIN SUPPLEMENTATION
  4. DEXAMETHASONE [Concomitant]

REACTIONS (2)
  - MESOTHELIOMA MALIGNANT RECURRENT [None]
  - RASH MACULO-PAPULAR [None]
